FAERS Safety Report 6418393-2 (Version None)
Quarter: 2009Q4

REPORT INFORMATION
  Report Type: 
  Country: None (occurrence: None)
  Receive Date: 20091021
  Receipt Date: 20090706
  Transmission Date: 20100525
  Serious: No
  Sender: FDA-Public Use
  Company Number: ALL1-2009-01840

PATIENT
  Sex: Male

DRUGS (8)
  1. VYVANSE [Suspect]
     Indication: ATTENTION DEFICIT/HYPERACTIVITY DISORDER
     Dosage: 30 MG, 1X/DAY:QD, ORAL : 70 MG, 1X/DAY:QD, ORAL : 70 MG, 2X/DAY:BID, ORAL
     Route: 048
     Dates: end: 20081001
  2. VYVANSE [Suspect]
     Indication: DEPRESSION
     Dosage: 30 MG, 1X/DAY:QD, ORAL : 70 MG, 1X/DAY:QD, ORAL : 70 MG, 2X/DAY:BID, ORAL
     Route: 048
     Dates: end: 20081001
  3. VYVANSE [Suspect]
     Indication: ATTENTION DEFICIT/HYPERACTIVITY DISORDER
     Dosage: 30 MG, 1X/DAY:QD, ORAL : 70 MG, 1X/DAY:QD, ORAL : 70 MG, 2X/DAY:BID, ORAL
     Route: 048
     Dates: start: 20081001
  4. VYVANSE [Suspect]
     Indication: DEPRESSION
     Dosage: 30 MG, 1X/DAY:QD, ORAL : 70 MG, 1X/DAY:QD, ORAL : 70 MG, 2X/DAY:BID, ORAL
     Route: 048
     Dates: start: 20081001
  5. UNSPECIFIED GENERIC AMPHETAMINE() TABLET [Suspect]
     Indication: ATTENTION DEFICIT/HYPERACTIVITY DISORDER
     Dosage: 5 MG, 1X/DAY:QD, ORAL
     Route: 048
     Dates: start: 20090601, end: 20090601
  6. UNSPECIFIED GENERIC AMPHETAMINE() TABLET [Suspect]
     Indication: DEPRESSION
     Dosage: 5 MG, 1X/DAY:QD, ORAL
     Route: 048
     Dates: start: 20090601, end: 20090601
  7. CYMBALTA [Concomitant]
  8. EXFORGE (AMLODIPINE, VALSARTAN) [Concomitant]

REACTIONS (13)
  - AGITATION [None]
  - ANXIETY [None]
  - DRUG EFFECT INCREASED [None]
  - DRY MOUTH [None]
  - FATIGUE [None]
  - FEELING JITTERY [None]
  - INAPPROPRIATE SCHEDULE OF DRUG ADMINISTRATION [None]
  - INSOMNIA [None]
  - IRRITABILITY [None]
  - MUSCLE TWITCHING [None]
  - OFF LABEL USE [None]
  - OVERDOSE [None]
  - TREMOR [None]
